FAERS Safety Report 15660185 (Version 1)
Quarter: 2018Q4

REPORT INFORMATION
  Report Type: Spontaneous
  Country: US (occurrence: US)
  Receive Date: 20181115
  Receipt Date: 20181115
  Transmission Date: 20190205
  Serious: Yes (Life-Threatening, Hospitalization)
  Sender: FDA-Public Use
  Company Number: None

PATIENT
  Age: 26 Year
  Sex: Female
  Weight: 72 kg

DRUGS (6)
  1. LEVOCETIRIZINE [Concomitant]
     Active Substance: LEVOCETIRIZINE
  2. ALBUTEROL. [Concomitant]
     Active Substance: ALBUTEROL
  3. HUMATE-P [Concomitant]
     Active Substance: HUMAN COAGULATION FACTOR VIII/VON WILLEBRAND FACTOR COMPLEX
  4. PROAIR HFA [Concomitant]
     Active Substance: ALBUTEROL SULFATE
  5. ANTIHEMOPHILIC FACTOR/ VON WILLIEBRAND FACTOR COMPLEX (HUMAN) [Suspect]
     Active Substance: HUMAN COAGULATION FACTOR VIII/VON WILLEBRAND FACTOR COMPLEX
     Indication: DYSMENORRHOEA
     Dosage: ?          QUANTITY:1 DF DOSAGE FORM;?
     Route: 042
     Dates: start: 20181103, end: 20181103
  6. OXYCODONE [Concomitant]
     Active Substance: OXYCODONE

REACTIONS (6)
  - Chills [None]
  - Seizure [None]
  - Hypersensitivity [None]
  - Therapy non-responder [None]
  - Infusion related reaction [None]
  - Amnesia [None]

NARRATIVE: CASE EVENT DATE: 20181103
